FAERS Safety Report 10678543 (Version 1)
Quarter: 2014Q4

REPORT INFORMATION
  Report Type: Spontaneous
  Country: US (occurrence: None)
  Receive Date: 20141224
  Receipt Date: 20141224
  Transmission Date: 20150529
  Serious: Yes (Hospitalization)
  Sender: FDA-Public Use
  Company Number: None

PATIENT
  Age: 21 Year
  Sex: Female
  Weight: 97.52 kg

DRUGS (1)
  1. ELIDEL [Suspect]
     Active Substance: PIMECROLIMUS
     Dosage: AS NEEDED, APPLIED TO A SURFACE, USUALLY THE SKIN
     Route: 061

REACTIONS (5)
  - Lacrimation increased [None]
  - Sleep disorder [None]
  - Eye swelling [None]
  - Hypersensitivity [None]
  - Eye irritation [None]

NARRATIVE: CASE EVENT DATE: 20141222
